FAERS Safety Report 7808020-1 (Version None)
Quarter: 2011Q4

REPORT INFORMATION
  Report Type: 
  Country: None (occurrence: None)
  Receive Date: 20111011
  Receipt Date: 20111011
  Transmission Date: 20120403
  Serious: Yes (Hospitalization)
  Sender: FDA-Public Use
  Company Number: None

PATIENT
  Sex: Male
  Weight: 80.4 kg

DRUGS (2)
  1. SORAFENIB [Concomitant]
     Indication: HEPATIC NEOPLASM MALIGNANT
     Dosage: 200MG
     Route: 048
     Dates: start: 20110829, end: 20111007
  2. TEMSIROLIMUS [Suspect]
     Indication: HEPATIC NEOPLASM MALIGNANT
     Dosage: 10MG
     Route: 042
     Dates: start: 20110829, end: 20111007

REACTIONS (2)
  - PNEUMONIA [None]
  - PULMONARY EMBOLISM [None]
